FAERS Safety Report 26193137 (Version 1)
Quarter: 2025Q4

REPORT INFORMATION
  Report Type: Spontaneous
  Country: US (occurrence: US)
  Receive Date: 20251223
  Receipt Date: 20251223
  Transmission Date: 20260117
  Serious: Yes (Life-Threatening, Hospitalization, Other)
  Sender: CIPLA
  Company Number: US-CIPLA LTD.-2025US16155

PATIENT

DRUGS (1)
  1. METOPROLOL [Suspect]
     Active Substance: METOPROLOL
     Dosage: THREE EXTRA DOSES OF METOPROLOL SUCCINATE 200 MG EARLIER IN THE DAY
     Route: 065

REACTIONS (5)
  - Intentional overdose [Unknown]
  - Renal tubular necrosis [Unknown]
  - Electrolyte imbalance [Unknown]
  - Acute respiratory failure [Unknown]
  - Unresponsive to stimuli [Unknown]
